FAERS Safety Report 6353090-3 (Version None)
Quarter: 2009Q3

REPORT INFORMATION
  Report Type: 
  Country: None (occurrence: None)
  Receive Date: 20090912
  Receipt Date: 20090622
  Transmission Date: 20100115
  Serious: No
  Sender: FDA-Public Use
  Company Number: US-ABBOTT-08P-163-0452626-00

PATIENT
  Sex: Male
  Weight: 84.898 kg

DRUGS (8)
  1. HUMIRA [Suspect]
     Indication: PSORIASIS
     Route: 050
     Dates: start: 20080514
  2. ASPIRIN [Concomitant]
     Indication: CARDIAC DISORDER
     Route: 048
  3. LOTRIL [Concomitant]
     Indication: STENT PLACEMENT
     Route: 048
  4. FISH OIL [Concomitant]
     Indication: CARDIAC DISORDER
     Route: 048
  5. METFORMIN HCL [Concomitant]
     Indication: DIABETES MELLITUS
     Route: 048
  6. OMETRACOLE [Concomitant]
     Indication: GASTRIC DISORDER
     Route: 048
  7. ATORVASTATIN CALCIUM [Concomitant]
     Indication: GASTRIC DISORDER
     Route: 048
  8. ROSIGLITAZONE MALEATE [Concomitant]
     Indication: DIABETES MELLITUS
     Route: 048

REACTIONS (1)
  - ACCIDENTAL NEEDLE STICK [None]
